FAERS Safety Report 19026201 (Version 2)
Quarter: 2021Q1

REPORT INFORMATION
  Report Type: Spontaneous
  Country: US (occurrence: US)
  Receive Date: 20210318
  Receipt Date: 20210322
  Transmission Date: 20210420
  Serious: Yes (Other)
  Sender: FDA-Public Use
  Company Number: US-PURDUE PHARMA-USA-2021-0233710

PATIENT
  Age: 65 Year
  Sex: Male

DRUGS (1)
  1. HYDROMORPHONE TABLETS [Suspect]
     Active Substance: HYDROMORPHONE
     Indication: PAIN
     Dosage: 4 MG, UNK
     Route: 048

REACTIONS (4)
  - Arthropathy [Unknown]
  - Therapeutic product effect decreased [Unknown]
  - Knee operation [Unknown]
  - Spinal operation [Unknown]

NARRATIVE: CASE EVENT DATE: 202102
